FAERS Safety Report 8919205 (Version 1)
Quarter: 2012Q4

REPORT INFORMATION
  Report Type: 
  Country: US (occurrence: US)
  Receive Date: 20121121
  Receipt Date: 20121121
  Transmission Date: 20130627
  Serious: Yes (Death)
  Sender: FDA-Public Use
  Company Number: US-B.I. PHARMACEUTICALS,INC./RIDGEFIELD-2012-BI-00392BP

PATIENT
  Age: 81 Year
  Sex: Female

DRUGS (10)
  1. PRADAXA [Suspect]
     Dosage: 300 mg
     Route: 048
     Dates: start: 2010
  2. WATER PILL [Concomitant]
     Route: 048
  3. LANOXIN [Concomitant]
     Route: 048
  4. POTASSIUM [Concomitant]
     Route: 048
  5. CALCIUM [Concomitant]
     Route: 048
  6. LYRICA [Concomitant]
     Route: 048
  7. VITAMIN E [Concomitant]
     Route: 048
  8. ASPIRIN [Concomitant]
     Route: 048
  9. VITAMIN [Concomitant]
     Route: 048
  10. METFORMIN [Concomitant]
     Indication: DIABETES MELLITUS
     Route: 048

REACTIONS (4)
  - Death [Fatal]
  - Urinary incontinence [Unknown]
  - Oedema peripheral [Unknown]
  - Cough [Unknown]
